FAERS Safety Report 9424617 (Version 1)
Quarter: 2013Q3

REPORT INFORMATION
  Report Type: Spontaneous
  Country: US (occurrence: None)
  Receive Date: 20130725
  Receipt Date: 20130725
  Transmission Date: 20140515
  Serious: Yes (Hospitalization, Other)
  Sender: FDA-Public Use
  Company Number: SP06708

PATIENT
  Age: 56 Year
  Sex: Male
  Weight: 86.18 kg

DRUGS (8)
  1. XIFAXAN [Suspect]
     Indication: HEPATIC ENCEPHALOPATHY
     Dosage: (SEE TEXT)
     Route: 048
     Dates: start: 201207
  2. OMEPRAZOLE [Concomitant]
  3. HYDROCHLOROTHIAZIDE [Concomitant]
  4. POTASSIUM CHLORIDE [Concomitant]
  5. VITAMIN D3 [Concomitant]
  6. DIAZEPAM [Concomitant]
  7. TEMAZEPAM [Concomitant]
  8. VITAMIN B12 [Concomitant]

REACTIONS (12)
  - Hepatic cancer [None]
  - Pneumonia [None]
  - Neutropenia [None]
  - Platelet count decreased [None]
  - Liver disorder [None]
  - Thinking abnormal [None]
  - Abnormal dreams [None]
  - Ammonia increased [None]
  - Mobility decreased [None]
  - Mental impairment [None]
  - Dyspnoea [None]
  - Local swelling [None]
